FAERS Safety Report 9548395 (Version 1)
Quarter: 2013Q3

REPORT INFORMATION
  Report Type: Spontaneous
  Country: US (occurrence: None)
  Receive Date: 20130919
  Receipt Date: 20130919
  Transmission Date: 20140515
  Serious: Yes (Hospitalization, Other)
  Sender: FDA-Public Use
  Company Number: 2012-003756

PATIENT
  Age: 77 Year
  Sex: Female

DRUGS (23)
  1. ACTONEL [Suspect]
     Indication: OSTEOPOROSIS
     Dosage: 35MG ONCE WEEKLY, ORAL
     Route: 048
     Dates: start: 2004, end: 20080306
  2. ALENDRONATE [Suspect]
     Indication: OSTEOPOROSIS
     Dosage: 70MG ONCE WEEKLY, ORAL
     Route: 048
     Dates: start: 20080306
  3. PREMARIN [Concomitant]
  4. LISINOPRIL HYDROCHLORTHIAZID (HYDROCHLOROTHIAZIDE, LISINOPRIL) [Concomitant]
  5. METOPROLOL (METOPROLOL) [Concomitant]
  6. VITAMIN E (TOCOPHEROL) [Concomitant]
  7. SIMVASTATIN (SIMVASTATIN) [Concomitant]
  8. LIPITOR (ATORVASTATIN CALCIUM) [Concomitant]
  9. ASTELIN (AZELASTINE HYDROCHLORIDE) [Concomitant]
  10. FLONASE (FLUTICASONE PROPIONATE) [Concomitant]
  11. RHINOCORT (BUDESONIDE) [Concomitant]
  12. ALBUTEROL (SALBUTAMOL) [Concomitant]
  13. ATROVENT (IPRATROPIUM BROMIDE) [Concomitant]
  14. ADVAIR (FLUTICASONE PROPIONATE, SALMETEROL XINAFOATE) [Concomitant]
  15. PEPCID AC (FAMOTIDINE) [Concomitant]
  16. LORAZEPAM (LORAZEPAM) [Concomitant]
  17. PENCILLIN VK (PHENOXYMETHYLPENICILLIN POTASSIUM) [Concomitant]
  18. CIPROFLOXACIN (CIPROFLOXACIN) [Concomitant]
  19. GUAIFENESIN/CODEINE (CODEINE PHOSPHATE, GUAIFENESIN) [Concomitant]
  20. BELLADONNA AND PHENOBARBITONE (ATROPA BELLADONNA EXTRACT, PHENOBARBITAL) [Concomitant]
  21. TRIAMCINOLONE (TRIAMCINOLONE) [Concomitant]
  22. LAMISIL [Concomitant]
  23. CALCIUM (CALCIUM) [Concomitant]

REACTIONS (5)
  - Femur fracture [None]
  - Comminuted fracture [None]
  - Fracture displacement [None]
  - Stress fracture [None]
  - Fall [None]
